FAERS Safety Report 18795156 (Version 3)
Quarter: 2021Q4

REPORT INFORMATION
  Report Type: Spontaneous
  Country: US (occurrence: US)
  Receive Date: 20210127
  Receipt Date: 20211022
  Transmission Date: 20220304
  Serious: No
  Sender: FDA-Public Use
  Company Number: US-PFIZER INC-2021069846

PATIENT
  Age: 76 Year
  Sex: Female
  Weight: 76.2 kg

DRUGS (1)
  1. PREGABALIN [Suspect]
     Active Substance: PREGABALIN
     Dosage: 100 MG, 3X/DAY (100MG THREE TIMES A DAY BY MOUTH)
     Route: 048
     Dates: start: 202006, end: 202012

REACTIONS (4)
  - Diarrhoea [Recovering/Resolving]
  - Drug hypersensitivity [Recovering/Resolving]
  - Weight decreased [Recovering/Resolving]
  - Illness [Recovering/Resolving]

NARRATIVE: CASE EVENT DATE: 20200601
